FAERS Safety Report 17342023 (Version 7)
Quarter: 2020Q3

REPORT INFORMATION
  Report Type: Report from Study
  Country: US (occurrence: US)
  Receive Date: 20200129
  Receipt Date: 20200702
  Transmission Date: 20201102
  Serious: Yes (Other)
  Sender: FDA-Public Use
  Company Number: NVSC2020US021547

PATIENT
  Age: 63 Year
  Sex: Female

DRUGS (3)
  1. ENTRESTO [Suspect]
     Active Substance: SACUBITRIL\VALSARTAN
     Dosage: 24 MG, BID
     Route: 048
  2. ENTRESTO [Suspect]
     Active Substance: SACUBITRIL\VALSARTAN
     Indication: CARDIAC FAILURE CONGESTIVE
     Dosage: 1 DF (SACUBITRIL 24/VALSARTAN 26 MG), BID
     Route: 048
     Dates: start: 201903
  3. CARVEDILOL. [Suspect]
     Active Substance: CARVEDILOL
     Indication: FATIGUE
     Dosage: UNK
     Route: 065

REACTIONS (13)
  - Suspected COVID-19 [Unknown]
  - Incorrect dose administered [Unknown]
  - Tremor [Unknown]
  - Hypersensitivity [Unknown]
  - Cough [Recovering/Resolving]
  - Dizziness [Recovered/Resolved]
  - Fatigue [Not Recovered/Not Resolved]
  - Feeling abnormal [Recovering/Resolving]
  - Ventricular arrhythmia [Recovering/Resolving]
  - Fear [Recovering/Resolving]
  - Peripheral swelling [Not Recovered/Not Resolved]
  - Panic reaction [Recovering/Resolving]
  - Dehydration [Unknown]

NARRATIVE: CASE EVENT DATE: 202001
